FAERS Safety Report 4491686-4 (Version None)
Quarter: 2004Q4

REPORT INFORMATION
  Report Type: 
  Country: None (occurrence: None)
  Receive Date: 20041103
  Receipt Date: 20030605
  Transmission Date: 20050328
  Serious: Yes (Hospitalization, Other)
  Sender: FDA-Public Use
  Company Number: US-MERCK-0306USA00617

PATIENT
  Age: 58 Year
  Sex: Female
  Weight: 73 kg

DRUGS (11)
  1. VIOXX [Suspect]
     Route: 048
     Dates: start: 20001101, end: 20011024
  2. GLYBURIDE [Concomitant]
     Route: 048
  3. GLUCOPHAGE [Concomitant]
     Route: 048
  4. EXTRA STRENGTH TYLENOL [Concomitant]
     Route: 065
  5. ACCUPRIL [Concomitant]
     Route: 048
  6. FER-SUL [Concomitant]
     Route: 048
  7. BENADRYL [Concomitant]
     Route: 065
  8. PREVACID [Concomitant]
     Route: 065
  9. ENALAPRIL MALEATE [Concomitant]
     Route: 065
  10. ADALAT [Concomitant]
     Route: 065
  11. LESCOL [Concomitant]
     Route: 065

REACTIONS (29)
  - ADVERSE EVENT [None]
  - ANGINA PECTORIS [None]
  - ANXIETY DISORDER [None]
  - ASTHENIA [None]
  - BENIGN BREAST NEOPLASM [None]
  - BLOOD CHOLESTEROL INCREASED [None]
  - BLOOD PRESSURE INCREASED [None]
  - CARDIAC FAILURE CONGESTIVE [None]
  - CARDIOMEGALY [None]
  - CATARACT [None]
  - CHRONIC OBSTRUCTIVE AIRWAYS DISEASE [None]
  - CONVULSION [None]
  - CORONARY ARTERY DISEASE [None]
  - DEPRESSION [None]
  - EAR PAIN [None]
  - FIBROMYALGIA [None]
  - INSOMNIA [None]
  - MITRAL VALVE DISEASE [None]
  - MITRAL VALVE INCOMPETENCE [None]
  - PAIN [None]
  - PEPTIC ULCER [None]
  - PERIARTHRITIS [None]
  - SEASONAL ALLERGY [None]
  - SPINAL COLUMN STENOSIS [None]
  - SPONDYLOSIS [None]
  - STRESS SYMPTOMS [None]
  - SYNCOPE [None]
  - TINEA CAPITIS [None]
  - VENTRICULAR DYSFUNCTION [None]
